FAERS Safety Report 9858026 (Version 1)
Quarter: 2014Q1

REPORT INFORMATION
  Report Type: Report from Study
  Country: SE (occurrence: SE)
  Receive Date: 20140131
  Receipt Date: 20140131
  Transmission Date: 20141002
  Serious: Yes (Hospitalization)
  Sender: FDA-Public Use
  Company Number: SE-JNJFOC-20140116347

PATIENT
  Age: 79 Year
  Sex: Female
  Weight: 85 kg

DRUGS (18)
  1. XARELTO [Suspect]
     Indication: ATRIAL FIBRILLATION
     Route: 048
     Dates: start: 20131015
  2. XARELTO [Suspect]
     Indication: CEREBROVASCULAR ACCIDENT PROPHYLAXIS
     Route: 048
     Dates: start: 20131015
  3. SIMVASTATIN [Concomitant]
     Route: 065
     Dates: start: 20130826
  4. DIGOXIN [Concomitant]
     Route: 065
     Dates: start: 20120306
  5. FURIX [Concomitant]
     Route: 065
     Dates: start: 20130824
  6. FURIX [Concomitant]
     Route: 065
     Dates: start: 20131229, end: 20140102
  7. PLENDIL [Concomitant]
     Route: 065
     Dates: start: 20120319
  8. APROVEL [Concomitant]
     Route: 065
     Dates: start: 20101012
  9. ANASTROZOLE [Concomitant]
     Route: 065
     Dates: start: 20090319
  10. CITODON [Concomitant]
     Route: 065
     Dates: start: 20131021
  11. LYRICA [Concomitant]
     Route: 065
     Dates: start: 20130313
  12. ZOPICLON [Concomitant]
     Route: 065
     Dates: start: 20110405
  13. CITALOPRAM [Concomitant]
     Route: 065
     Dates: start: 20130422
  14. MIRTAZAPIN [Concomitant]
     Route: 065
     Dates: start: 20130422
  15. INSULIN [Concomitant]
     Route: 065
     Dates: start: 201201
  16. CYKLOKAPRON [Concomitant]
     Route: 065
     Dates: start: 20140104, end: 20140105
  17. CEFOTAXIM [Concomitant]
     Route: 065
     Dates: start: 20131228, end: 20140101
  18. AMOXICILLIN [Concomitant]
     Route: 065
     Dates: start: 20140101, end: 20140106

REACTIONS (4)
  - Gastritis erosive [Recovering/Resolving]
  - Pneumonia [Recovered/Resolved]
  - Cardiac failure [Recovered/Resolved]
  - Epistaxis [Recovered/Resolved]
